FAERS Safety Report 8349400-8 (Version None)
Quarter: 2012Q2

REPORT INFORMATION
  Report Type: 
  Country: None (occurrence: None)
  Receive Date: 20120510
  Receipt Date: 20120504
  Transmission Date: 20120825
  Serious: Yes (Hospitalization, Other)
  Sender: FDA-Public Use
  Company Number: US-AMGEN-USASP2011055900

PATIENT
  Age: 30 Year
  Sex: Male
  Weight: 113 kg

DRUGS (3)
  1. ENBREL [Suspect]
     Indication: PSORIASIS
     Dosage: 50 MG, QWK
     Dates: start: 20101028
  2. BUPROPION HCL [Concomitant]
     Indication: DEPRESSION
     Dosage: 100 MG, BID
     Route: 048
  3. BENICAR [Concomitant]
     Indication: HYPERTENSION
     Dosage: 12.5 MG, QD
     Route: 048
     Dates: start: 20110901

REACTIONS (6)
  - CONVULSION [None]
  - CONTUSION [None]
  - PAIN IN EXTREMITY [None]
  - LOSS OF CONSCIOUSNESS [None]
  - INTERVERTEBRAL DISC PROTRUSION [None]
  - BACK PAIN [None]
